FAERS Safety Report 9206164 (Version 1)
Quarter: 2013Q2

REPORT INFORMATION
  Report Type: Spontaneous
  Country: IN (occurrence: IN)
  Receive Date: 20130403
  Receipt Date: 20130403
  Transmission Date: 20140414
  Serious: Yes (Other)
  Sender: FDA-Public Use
  Company Number: IN-RANBAXY-2013RR-66404

PATIENT
  Age: 45 Year
  Sex: Female

DRUGS (8)
  1. FLUOXETINE [Suspect]
     Indication: OBSESSIVE-COMPULSIVE DISORDER
     Dosage: 20 MG, UNK
     Route: 065
  2. FLUOXETINE [Suspect]
     Indication: OBSESSIVE-COMPULSIVE DISORDER
     Dosage: 60 MG/DAY
     Route: 065
  3. QUETIAPINE [Concomitant]
     Indication: SLEEP DISORDER
     Dosage: 200 MG/DAY
     Route: 065
  4. QUETIAPINE [Concomitant]
     Indication: ANXIETY
  5. ALPRAZOLAM [Concomitant]
     Indication: SLEEP DISORDER
     Dosage: 4.5 MG/DAY
     Route: 065
  6. ALPRAZOLAM [Concomitant]
     Indication: ANXIETY
  7. THYRONORM [Concomitant]
     Indication: BLOOD THYROID STIMULATING HORMONE INCREASED
     Dosage: 25 MCG
     Route: 065
  8. CLOMIPRAMINE [Concomitant]
     Indication: OBSESSIVE-COMPULSIVE DISORDER
     Dosage: 100 MG/DAY
     Route: 065

REACTIONS (2)
  - Neutropenia [Recovered/Resolved]
  - Respiratory tract infection [Recovering/Resolving]
